FAERS Safety Report 5063164-5 (Version None)
Quarter: 2006Q3

REPORT INFORMATION
  Report Type: 
  Country: None (occurrence: None)
  Receive Date: 20060724
  Receipt Date: 20060712
  Transmission Date: 20061208
  Serious: Yes (Life-Threatening)
  Sender: FDA-Public Use
  Company Number: MC200600442

PATIENT
  Age: 73 Year
  Sex: Female
  Weight: 93.4 kg

DRUGS (1)
  1. ANGIOMAX [Suspect]
     Indication: PERCUTANEOUS CORONARY INTERVENTION
     Dosage: SEE IMAGE
     Route: 042
     Dates: start: 20060626, end: 20060626

REACTIONS (6)
  - CARDIAC ARREST [None]
  - COAGULATION TIME ABNORMAL [None]
  - CORONARY ARTERY STENOSIS [None]
  - THROMBOSIS [None]
  - THROMBOSIS IN DEVICE [None]
  - VENTRICULAR FIBRILLATION [None]
